FAERS Safety Report 5478648-5 (Version None)
Quarter: 2007Q4

REPORT INFORMATION
  Report Type: 
  Country: None (occurrence: None)
  Receive Date: 20071005
  Receipt Date: 20070927
  Transmission Date: 20080405
  Serious: Yes (Hospitalization, Other)
  Sender: FDA-Public Use
  Company Number: US-PFIZER INC-2005103318

PATIENT
  Sex: Female
  Weight: 61.2 kg

DRUGS (18)
  1. DETROL LA [Suspect]
     Indication: HYPERTONIC BLADDER
     Route: 048
  2. DETROL LA [Suspect]
  3. PROCARDIA XL [Concomitant]
     Route: 048
  4. ASPIRIN [Concomitant]
     Route: 048
  5. LISINOPRIL [Concomitant]
     Route: 048
  6. ISOSORBIDE DINITRATE [Concomitant]
     Route: 048
  7. MIACALCIN [Concomitant]
  8. ACTOS [Concomitant]
     Route: 048
  9. CELEXA [Concomitant]
     Route: 048
  10. GLUCOSAMINE W/CHONDROITIN SULFATES [Concomitant]
     Route: 048
  11. CALTRATE + D [Concomitant]
     Route: 048
  12. CENTRUM SILVER [Concomitant]
     Route: 048
  13. OXYCODONE HCL [Concomitant]
     Route: 048
  14. LEXAPRO [Concomitant]
  15. PERCOCET [Concomitant]
  16. CHONDROITIN [Concomitant]
  17. TRAVATAN [Concomitant]
  18. VESICARE [Concomitant]

REACTIONS (4)
  - CATARACT OPERATION [None]
  - INTRAOCULAR PRESSURE INCREASED [None]
  - JOINT INJURY [None]
  - ROAD TRAFFIC ACCIDENT [None]
